FAERS Safety Report 6432683-9 (Version None)
Quarter: 2009Q4

REPORT INFORMATION
  Report Type: 
  Country: None (occurrence: None)
  Receive Date: 20091109
  Receipt Date: 20091103
  Transmission Date: 20100525
  Serious: Yes (Life-Threatening, Hospitalization)
  Sender: FDA-Public Use
  Company Number: GXKR2009DE12042

PATIENT
  Age: 72 Year
  Sex: Male
  Weight: 109 kg

DRUGS (19)
  1. THEOPHYLLINE (NGX) [Interacting]
     Indication: CHRONIC OBSTRUCTIVE PULMONARY DISEASE
     Dosage: 500 MG, BID
     Route: 048
     Dates: start: 20060401, end: 20090103
  2. ALLOPURINOL (NGX) [Suspect]
     Dosage: 300 MG, QD
     Dates: start: 20060401, end: 20090102
  3. AMLODIPINE [Concomitant]
  4. BERLINSULIN H NORMAL [Concomitant]
  5. CITALOPRAM HYDROBROMIDE [Concomitant]
  6. DIGITOXIN INJ [Concomitant]
  7. LEVOTHYROXINE SODIUM [Concomitant]
  8. FALITHROM ^HEXAL^ [Concomitant]
  9. LEVEMIR [Concomitant]
  10. METAMIZOLE [Concomitant]
  11. NEBIVOLOL [Concomitant]
  12. PANTOPRAZOLE SODIUM [Concomitant]
  13. RAMIPRIL [Concomitant]
  14. SIMVASTATIN [Concomitant]
  15. TIOTROPIUM BROMIDE [Concomitant]
  16. SPIRONOLACTONE [Concomitant]
  17. SYMBICORT [Concomitant]
  18. TAMSULOSIN [Concomitant]
  19. TORASEMIDE [Concomitant]

REACTIONS (1)
  - DRUG TOXICITY [None]
